FAERS Safety Report 5990165-2 (Version None)
Quarter: 2008Q4

REPORT INFORMATION
  Report Type: 
  Country: None (occurrence: None)
  Receive Date: 20081210
  Receipt Date: 20081126
  Transmission Date: 20090506
  Serious: Yes (Death)
  Sender: FDA-Public Use
  Company Number: 2008AL012126

PATIENT
  Age: 77 Year
  Sex: Female

DRUGS (16)
  1. GABAPENTIN [Suspect]
     Dosage: 600 MG; TID; PO
     Route: 048
     Dates: start: 20080811
  2. SIMVASTATIN [Concomitant]
  3. AMINOPHYLLINE [Concomitant]
  4. CARBOCISTEINE [Concomitant]
  5. ENALAPRIL MALEATE [Concomitant]
  6. TIOTROPIUM BROMIDE [Concomitant]
  7. QVAR 40 [Concomitant]
  8. ALBUTEROL SULFATE [Concomitant]
  9. PHYLLOCONTIN [Concomitant]
  10. AMITRIPTYLINE HCL [Concomitant]
  11. ACETYLSALICYLIC ACID [Concomitant]
  12. DIPYRIDAMOLE [Concomitant]
  13. DILTIAZEM [Concomitant]
  14. ACETAMINOPHEN [Concomitant]
  15. OMEPRAZOLE [Concomitant]
  16. TRAMADOL HCL [Concomitant]

REACTIONS (3)
  - PANCREATITIS [None]
  - RENAL FAILURE [None]
  - RHABDOMYOLYSIS [None]
